FAERS Safety Report 25356517 (Version 1)
Quarter: 2025Q2

REPORT INFORMATION
  Report Type: Other
  Country: CN (occurrence: CN)
  Receive Date: 20250526
  Receipt Date: 20250526
  Transmission Date: 20250717
  Serious: Yes (Hospitalization)
  Sender: ANI
  Company Number: CN-ANIPHARMA-022886

PATIENT
  Age: 64 Year
  Sex: Female

DRUGS (7)
  1. OXYCODONE [Suspect]
     Active Substance: OXYCODONE
     Indication: Abdominal pain
  2. FLUOROURACIL [Concomitant]
     Active Substance: FLUOROURACIL
     Indication: Adenocarcinoma of colon
  3. OXALIPLATIN [Concomitant]
     Active Substance: OXALIPLATIN
     Indication: Adenocarcinoma of colon
  4. BEVACIZUMAB [Concomitant]
     Active Substance: BEVACIZUMAB
     Indication: Adenocarcinoma of colon
  5. SINTILIMAB [Concomitant]
     Active Substance: SINTILIMAB
     Indication: Adenocarcinoma of colon
  6. IODINE I-125 [Concomitant]
     Active Substance: IODINE I-125
     Indication: Adenocarcinoma of colon
  7. FRUQUINTINIB [Concomitant]
     Active Substance: FRUQUINTINIB
     Indication: Adenocarcinoma of colon

REACTIONS (4)
  - Drug intolerance [Unknown]
  - Treatment noncompliance [Unknown]
  - Dizziness [Unknown]
  - Intentional product misuse [Unknown]
